FAERS Safety Report 6206613-9 (Version None)
Quarter: 2009Q2

REPORT INFORMATION
  Report Type: 
  Country: None (occurrence: None)
  Receive Date: 20090527
  Receipt Date: 20090527
  Transmission Date: 20091009
  Serious: Yes (Life-Threatening)
  Sender: FDA-Public Use
  Company Number: None

PATIENT
  Age: 53 Year
  Sex: Female
  Weight: 69.4003 kg

DRUGS (2)
  1. DUONEB [Suspect]
     Indication: BRONCHOSPASM
     Dosage: 1 UNIT ONE TIME INHAL  ( ONE DOSE)
     Route: 055
  2. DUONEB [Suspect]
     Indication: WHEEZING
     Dosage: 1 UNIT ONE TIME INHAL  ( ONE DOSE)
     Route: 055

REACTIONS (3)
  - DIZZINESS [None]
  - HYPOAESTHESIA [None]
  - PARAESTHESIA [None]
